FAERS Safety Report 8012022-2 (Version None)
Quarter: 2011Q4

REPORT INFORMATION
  Report Type: 
  Country: None (occurrence: None)
  Receive Date: 20111228
  Receipt Date: 20111219
  Transmission Date: 20120403
  Serious: Yes (Other)
  Sender: FDA-Public Use
  Company Number: FR-GLAXOSMITHKLINE-B0770309A

PATIENT
  Sex: Male

DRUGS (3)
  1. TRIVASTAL [Concomitant]
     Indication: PARKINSON'S DISEASE
     Route: 065
  2. REQUIP [Suspect]
     Indication: PARKINSON'S DISEASE
     Route: 048
     Dates: start: 20040101, end: 20110101
  3. MODOPAR [Concomitant]
     Indication: PARKINSON'S DISEASE
     Route: 065

REACTIONS (5)
  - HYPERSEXUALITY [None]
  - COMPULSIVE SHOPPING [None]
  - AGGRESSION [None]
  - PSYCHOMOTOR HYPERACTIVITY [None]
  - JUDGEMENT IMPAIRED [None]
